FAERS Safety Report 6345158-2 (Version None)
Quarter: 2009Q3

REPORT INFORMATION
  Report Type: 
  Country: None (occurrence: None)
  Receive Date: 20090909
  Receipt Date: 20071129
  Transmission Date: 20100115
  Serious: Yes (Hospitalization, Other)
  Sender: FDA-Public Use
  Company Number: US-ASTRAZENECA-2006UW17478

PATIENT
  Age: 417 Month
  Sex: Female
  Weight: 158.8 kg

DRUGS (16)
  1. SEROQUEL [Suspect]
     Indication: BIPOLAR DISORDER
     Dosage: 100 MG - 300 MG
     Route: 048
     Dates: start: 20000801, end: 20050225
  2. SEROQUEL [Suspect]
     Indication: INSOMNIA
     Dosage: 100 MG - 300 MG
     Route: 048
     Dates: start: 20000801, end: 20050225
  3. SEROQUEL [Suspect]
     Dosage: 100 MG TO 400 MG
     Route: 048
     Dates: start: 20010524
  4. SEROQUEL [Suspect]
     Dosage: 100 MG TO 400 MG
     Route: 048
     Dates: start: 20010524
  5. EFFEXOR [Concomitant]
     Dates: start: 20061001
  6. ATENOLOL [Concomitant]
     Indication: PALPITATIONS
     Dates: start: 20000509
  7. SYNTHROID [Concomitant]
     Dosage: 0.2MG TO 150MG
     Dates: start: 20010401
  8. DEPAKOTE [Concomitant]
     Dosage: 750MG TO 1000MG
     Dates: start: 20010425
  9. TRAZODONE [Concomitant]
     Dosage: 50MG TO 150MG
     Dates: start: 20040810
  10. TORADOL [Concomitant]
     Dosage: 10 MG EVERY 4-6 HRS AS NEEDED
     Dates: start: 20051206
  11. KLONOPIN [Concomitant]
     Route: 048
     Dates: start: 20051206
  12. PRIMIDONE [Concomitant]
     Dates: start: 20051206
  13. REMERON [Concomitant]
     Dosage: 30-AT NIGHT
     Dates: start: 20051206
  14. PROZAC [Concomitant]
     Dates: start: 20000509
  15. LORAZEPAM [Concomitant]
     Dates: start: 20000509
  16. TEMAZEPAM [Concomitant]
     Dates: start: 20000509

REACTIONS (20)
  - ABDOMINAL HERNIA REPAIR [None]
  - ABORTION SPONTANEOUS [None]
  - ARRHYTHMIA [None]
  - BLINDNESS [None]
  - BLOOD DISORDER [None]
  - CARDIAC DISORDER [None]
  - CHOLECYSTECTOMY [None]
  - CONVULSION [None]
  - DIABETES MELLITUS [None]
  - DIABETES MELLITUS INADEQUATE CONTROL [None]
  - DIABETIC NEUROPATHY [None]
  - ESSENTIAL TREMOR [None]
  - HEART RATE IRREGULAR [None]
  - HYPOTHYROIDISM [None]
  - HYSTERECTOMY [None]
  - MYOCARDIAL INFARCTION [None]
  - NEUROPATHY PERIPHERAL [None]
  - THYROID DISORDER [None]
  - TYPE 2 DIABETES MELLITUS [None]
  - WEIGHT INCREASED [None]
